FAERS Safety Report 23245817 (Version 1)
Quarter: 2023Q4

REPORT INFORMATION
  Report Type: Spontaneous
  Country: US (occurrence: US)
  Receive Date: 20231130
  Receipt Date: 20231130
  Transmission Date: 20240109
  Serious: No
  Sender: FDA-Public Use
  Company Number: US-PFIZER INC-PV202300194027

PATIENT

DRUGS (1)
  1. TESSALON [Suspect]
     Active Substance: BENZONATATE
     Dosage: UNK

REACTIONS (1)
  - Drug ineffective [Unknown]
